FAERS Safety Report 21732008 (Version 1)
Quarter: 2022Q4

REPORT INFORMATION
  Report Type: Spontaneous
  Country: US (occurrence: US)
  Receive Date: 20221215
  Receipt Date: 20221215
  Transmission Date: 20230112
  Serious: Yes (Hospitalization, Other)
  Sender: FDA-Public Use
  Company Number: US-BRISTOL-MYERS SQUIBB COMPANY-2022-151546

PATIENT
  Age: 79 Year
  Sex: Male

DRUGS (1)
  1. REVLIMID [Suspect]
     Active Substance: LENALIDOMIDE
     Indication: Plasma cell myeloma
     Route: 048
     Dates: start: 202207, end: 202210

REACTIONS (4)
  - Pancytopenia [Recovering/Resolving]
  - Dehydration [Recovering/Resolving]
  - Neutropenia [Recovered/Resolved]
  - Plasma cell myeloma refractory [Unknown]

NARRATIVE: CASE EVENT DATE: 20220101
